FAERS Safety Report 11391053 (Version 1)
Quarter: 2015Q3

REPORT INFORMATION
  Report Type: Spontaneous
  Country: GB (occurrence: GB)
  Receive Date: 20150818
  Receipt Date: 20150818
  Transmission Date: 20151125
  Serious: Yes (Other)
  Sender: FDA-Public Use
  Company Number: GB-TARO PHARMACEUTICALS USA.,INC-2015SUN01842

PATIENT
  Age: 96 Year
  Sex: Female
  Weight: 61.3 kg

DRUGS (4)
  1. LISINOPRIL. [Concomitant]
     Active Substance: LISINOPRIL
     Dosage: 2.5 MG, QD
  2. NIFIDIPINE SUSTAINED-RELEASED [Concomitant]
     Dosage: 30 MG, DAILY
  3. WARFARIN [Suspect]
     Active Substance: WARFARIN
     Indication: ATRIAL FIBRILLATION
     Route: 065
  4. BENDROFLUMETHIAZIDE [Concomitant]
     Active Substance: BENDROFLUMETHIAZIDE
     Dosage: 2.5 MG, QD

REACTIONS (2)
  - Haemorrhagic hepatic cyst [Recovering/Resolving]
  - Right ventricular failure [Recovering/Resolving]
